FAERS Safety Report 9122925 (Version 1)
Quarter: 2013Q1

REPORT INFORMATION
  Report Type: Spontaneous
  Country: US (occurrence: US)
  Receive Date: 20130227
  Receipt Date: 20130227
  Transmission Date: 20140127
  Serious: No
  Sender: FDA-Public Use
  Company Number: US-GLAXOSMITHKLINE-A0987795A

PATIENT
  Age: 84 Year
  Sex: Female

DRUGS (2)
  1. VALACYCLOVIR [Suspect]
     Indication: HERPES ZOSTER
     Route: 065
  2. VALTREX [Concomitant]
     Indication: HERPES ZOSTER
     Route: 065

REACTIONS (1)
  - Herpes zoster [Unknown]
